FAERS Safety Report 7554494-3 (Version None)
Quarter: 2011Q2

REPORT INFORMATION
  Report Type: 
  Country: None (occurrence: None)
  Receive Date: 20110614
  Receipt Date: 20110614
  Transmission Date: 20111010
  Serious: Yes (Other)
  Sender: FDA-Public Use
  Company Number: None

PATIENT
  Age: 65 Year
  Sex: Female
  Weight: 61.2356 kg

DRUGS (1)
  1. CREST W/ FLUORIDE [Suspect]
     Indication: SENSITIVITY OF TEETH
     Dates: start: 20110401, end: 20110420

REACTIONS (1)
  - ORAL MUCOSAL EXFOLIATION [None]
